FAERS Safety Report 4592885-3 (Version None)
Quarter: 2005Q1

REPORT INFORMATION
  Report Type: 
  Country: None (occurrence: None)
  Receive Date: 20050228
  Receipt Date: 20050125
  Transmission Date: 20050727
  Serious: Yes (Death)
  Sender: FDA-Public Use
  Company Number: PHBS2005JP01443

PATIENT
  Age: 61 Year
  Sex: Female
  Weight: 49 kg

DRUGS (11)
  1. NEORAL [Suspect]
     Indication: HEPATITIS C
     Dosage: 200 MG/D
     Route: 048
     Dates: start: 20050106, end: 20050111
  2. INTERFERON [Suspect]
     Indication: HEPATITIS C
     Dosage: UNK, UNK
     Route: 042
     Dates: start: 20050106, end: 20050111
  3. GASTER D [Concomitant]
     Dosage: 20 MG/D
     Route: 048
     Dates: start: 20040816, end: 20050111
  4. PAXIL [Concomitant]
     Dosage: 10 MG/D
     Route: 048
     Dates: start: 20040816, end: 20050111
  5. PROMETHAZINE HCL [Concomitant]
     Dosage: 0.15 G/D
     Route: 048
     Dates: start: 20040816, end: 20050111
  6. EVAMYL [Concomitant]
     Dosage: 1 MG/D
     Route: 048
     Dates: start: 20040816, end: 20050111
  7. LORAZEPAM [Concomitant]
     Dosage: 0.5 MG/D
     Route: 048
     Dates: start: 20040816, end: 20050111
  8. GLYCYRON [Concomitant]
     Dosage: 100 MG/D
     Route: 048
     Dates: start: 20040816, end: 20050111
  9. SEDIEL [Concomitant]
     Dosage: 20 MG/D
     Route: 048
     Dates: start: 20040816, end: 20050111
  10. PANTOSIN [Concomitant]
     Dosage: 200 MG/D
     Route: 048
     Dates: start: 20040816, end: 20050111
  11. NAUZELIN [Concomitant]
     Dosage: 0.5 G/D
     Route: 048
     Dates: start: 20040816, end: 20050111

REACTIONS (7)
  - BLOOD PRESSURE INCREASED [None]
  - CARDIO-RESPIRATORY ARREST [None]
  - HEART RATE INCREASED [None]
  - INTRACRANIAL ANEURYSM [None]
  - LOSS OF CONSCIOUSNESS [None]
  - SUBARACHNOID HAEMORRHAGE [None]
  - VENTRICULAR FIBRILLATION [None]
